FAERS Safety Report 13522728 (Version 1)
Quarter: 2017Q2

REPORT INFORMATION
  Report Type: Spontaneous
  Country: US (occurrence: US)
  Receive Date: 20170508
  Receipt Date: 20170508
  Transmission Date: 20170830
  Serious: Yes (Hospitalization, Other)
  Sender: FDA-Public Use
  Company Number: US-PFIZER INC-2017196417

PATIENT
  Age: 66 Year
  Sex: Male
  Weight: 97 kg

DRUGS (6)
  1. LYRICA [Suspect]
     Active Substance: PREGABALIN
     Indication: FACIAL NERVE DISORDER
     Dosage: 75 MG, 1X/DAY
  2. LAMOTRIGINE. [Concomitant]
     Active Substance: LAMOTRIGINE
     Indication: NEURALGIA
     Dosage: 50 MG, 2X/DAY
     Dates: start: 201411
  3. ALLOPURINOL. [Concomitant]
     Active Substance: ALLOPURINOL
     Indication: GOUT
     Dosage: 100 MG, ALTERNATE DAY
  4. LYRICA [Suspect]
     Active Substance: PREGABALIN
     Dosage: 75 MG, 2X/DAY
  5. GABAPENTIN. [Concomitant]
     Active Substance: GABAPENTIN
     Indication: FACIAL NERVE DISORDER
     Dosage: 300 MG, 1X/DAY, IN THE MORNING; TAKES ONLY IF HE IS NOT TAKING LYRICA TWICE A DAY
  6. WARFARIN [Concomitant]
     Active Substance: WARFARIN
     Indication: COAGULOPATHY
     Dosage: 2MG TABLETS, DOSE VARIES FROM 2 TO 4 TABLETS A DAY; TAKES AN EXTRA 1MG TABLET SOMETIMES
     Dates: start: 201411

REACTIONS (5)
  - Renal impairment [Not Recovered/Not Resolved]
  - Gallbladder disorder [Unknown]
  - Functional gastrointestinal disorder [Unknown]
  - Vomiting [Recovered/Resolved]
  - Abdominal pain upper [Recovered/Resolved]

NARRATIVE: CASE EVENT DATE: 201411
